FAERS Safety Report 14224805 (Version 1)
Quarter: 2017Q4

REPORT INFORMATION
  Report Type: Spontaneous
  Country: US (occurrence: US)
  Receive Date: 20171127
  Receipt Date: 20171127
  Transmission Date: 20180321
  Serious: No
  Sender: FDA-Public Use
  Company Number: US-IROKO PHARMACEUTICALS LLC-US-I09001-17-00107

PATIENT
  Age: 62 Year
  Sex: Female
  Weight: 76.66 kg

DRUGS (4)
  1. REVATIO [Concomitant]
     Active Substance: SILDENAFIL CITRATE
     Indication: PORTOPULMONARY HYPERTENSION
     Route: 048
     Dates: start: 2010
  2. CEFALEXIN [Concomitant]
     Active Substance: CEPHALEXIN
     Indication: SKIN ULCER
     Route: 048
     Dates: start: 20170716, end: 20170717
  3. ZORVOLEX [Suspect]
     Active Substance: DICLOFENAC
     Indication: FRACTURE
  4. ZORVOLEX [Suspect]
     Active Substance: DICLOFENAC
     Indication: INFLAMMATION
     Route: 048
     Dates: start: 20170716, end: 20170718

REACTIONS (1)
  - Off label use [Recovered/Resolved]

NARRATIVE: CASE EVENT DATE: 20170716
